FAERS Safety Report 16576575 (Version 1)
Quarter: 2019Q3

REPORT INFORMATION
  Report Type: Spontaneous
  Country: DE (occurrence: DE)
  Receive Date: 20190716
  Receipt Date: 20190716
  Transmission Date: 20191004
  Serious: Yes (Hospitalization)
  Sender: FDA-Public Use
  Company Number: DE-TEVA-2019-DE-1077158

PATIENT
  Age: 54 Year
  Sex: Female
  Weight: 91.4 kg

DRUGS (7)
  1. ELIQUIS [Concomitant]
     Active Substance: APIXABAN
     Dosage: 5 MG, 1-0-1-0, TABLETS
     Route: 048
  2. GEMCITABINE. [Suspect]
     Active Substance: GEMCITABINE
     Dosage: NK MG/KG BW, BY SCHEME, LAST ON 11.12.201, SOLUTION FOR INJECTION/INFUSION
     Route: 042
  3. PANTOPRAZOL [Concomitant]
     Active Substance: PANTOPRAZOLE SODIUM
     Dosage: 40 MG, 1-0-0-0, TABLETS
     Route: 048
  4. PACLITAXEL. [Suspect]
     Active Substance: PACLITAXEL
     Dosage: NK MG/KG KG, BY SCHEME, LAST ON 11.12.2017, SOLUTION FOR INJECTION/INFUSION
     Route: 042
  5. ONDANSETRON [Concomitant]
     Active Substance: ONDANSETRON
     Dosage: 8 MG, 1-0-1-0, TABLETS
     Route: 048
  6. KREON 25000 [Concomitant]
     Active Substance: PANCRELIPASE
     Dosage: 300 MG, 1-1-1-0, CAPSULE
     Route: 048
  7. LOPERAMID [Concomitant]
     Active Substance: LOPERAMIDE
     Dosage: 2 MG, IF NECESSARY, TABLETS
     Route: 048

REACTIONS (3)
  - Nausea [Unknown]
  - Vomiting [Unknown]
  - Tachycardia [Unknown]
